FAERS Safety Report 4311586-X (Version None)
Quarter: 2004Q1

REPORT INFORMATION
  Report Type: 
  Country: None (occurrence: None)
  Receive Date: 20040303
  Receipt Date: 20040303
  Transmission Date: 20041129
  Serious: Yes (Death)
  Sender: FDA-Public Use
  Company Number: None

PATIENT
  Age: 20 Year
  Sex: Male
  Weight: 81.6475 kg

DRUGS (1)
  1. CLOZAPINE [Suspect]
     Dosage: 3 X DAILY ORAL
     Route: 048
     Dates: start: 20001015, end: 20010128

REACTIONS (5)
  - ANXIETY [None]
  - DRUG TOXICITY [None]
  - PSYCHOTIC DISORDER [None]
  - SALIVARY HYPERSECRETION [None]
  - VOMITING [None]
